FAERS Safety Report 7396920-9 (Version None)
Quarter: 2011Q2

REPORT INFORMATION
  Report Type: 
  Country: None (occurrence: None)
  Receive Date: 20110406
  Receipt Date: 20110322
  Transmission Date: 20111010
  Serious: No
  Sender: FDA-Public Use
  Company Number: US-BAYER-2011-018459

PATIENT
  Sex: Male
  Weight: 82 kg

DRUGS (8)
  1. ALEVE (CAPLET) [Suspect]
     Indication: PAIN
     Dosage: 440 MG, UNK
     Route: 048
  2. LISINOPRIL [Concomitant]
  3. NIACIN [Concomitant]
  4. INSULIN [Concomitant]
  5. FISH OIL [Concomitant]
     Dosage: 4000 MG, UNK
  6. ASPIRIN [Concomitant]
     Dosage: 81 MG, UNK
  7. CALCIUM [Concomitant]
     Dosage: 1200 MG, UNK
  8. ALLOPURINOL [Concomitant]

REACTIONS (5)
  - PAIN [None]
  - DIZZINESS [None]
  - FATIGUE [None]
  - UNEVALUABLE EVENT [None]
  - LISTLESS [None]
